FAERS Safety Report 25256021 (Version 1)
Quarter: 2025Q2

REPORT INFORMATION
  Report Type: Report from Study
  Country: KR (occurrence: KR)
  Receive Date: 20250430
  Receipt Date: 20250430
  Transmission Date: 20250716
  Serious: Yes (Death)
  Sender: MYLAN
  Company Number: KR-MYLANLABS-2025M1036685

PATIENT
  Age: 64 Year
  Sex: Male
  Weight: 41.4 kg

DRUGS (16)
  1. PRETOMANID [Suspect]
     Active Substance: PRETOMANID
     Indication: Tuberculosis
     Dosage: 200 MILLIGRAM, QD
     Dates: start: 20250114, end: 20250404
  2. PRETOMANID [Suspect]
     Active Substance: PRETOMANID
     Dosage: 200 MILLIGRAM, QD
     Dates: start: 20250414, end: 20250420
  3. BEDAQUILINE [Suspect]
     Active Substance: BEDAQUILINE
     Indication: Tuberculosis
     Dosage: 400 MILLIGRAM, QD
     Dates: start: 20250114, end: 20250127
  4. BEDAQUILINE [Suspect]
     Active Substance: BEDAQUILINE
     Dates: start: 20250128, end: 20250404
  5. BEDAQUILINE [Suspect]
     Active Substance: BEDAQUILINE
     Dates: start: 20250414, end: 20250420
  6. LINEZOLID [Suspect]
     Active Substance: LINEZOLID
     Indication: Tuberculosis
     Dosage: 600 MILLIGRAM, QD
     Dates: start: 20250114, end: 20250404
  7. LINEZOLID [Suspect]
     Active Substance: LINEZOLID
     Dosage: 600 MILLIGRAM, QD
     Dates: start: 20250414, end: 20250420
  8. AVELOX [Concomitant]
     Active Substance: MOXIFLOXACIN HYDROCHLORIDE
     Indication: Tuberculosis
     Dosage: 400 MILLIGRAM, QD
     Dates: start: 20250114, end: 20250310
  9. QUETIAPINE FUMARATE [Concomitant]
     Active Substance: QUETIAPINE FUMARATE
     Indication: Delirium
     Dosage: 25 MILLIGRAM, QD
     Dates: start: 20250115, end: 20250124
  10. Codaewon forte [Concomitant]
     Indication: Cough
     Dosage: 20 MILLILITER, QD
     Dates: start: 20250125, end: 20250228
  11. Codaewon forte [Concomitant]
     Indication: Productive cough
  12. Empra [Concomitant]
     Indication: Prophylaxis
     Dates: start: 20250125, end: 20250403
  13. Atoren [Concomitant]
     Indication: Cerebrovascular accident
     Dosage: 10 MILLIGRAM, QD
     Dates: start: 20250125, end: 20250403
  14. Q rokel [Concomitant]
     Indication: Insomnia
     Dosage: 25 MILLIGRAM, QD
     Dates: start: 20250125, end: 20250403
  15. Medilac ds [Concomitant]
     Indication: Prophylaxis
     Dosage: UNK
     Dates: start: 20250125, end: 20250403
  16. Silvercept [Concomitant]
     Indication: Delirium
     Dosage: 5 MILLIGRAM, QD
     Dates: start: 20250212, end: 20250403

REACTIONS (1)
  - Pneumonia aspiration [Fatal]

NARRATIVE: CASE EVENT DATE: 20250401
